FAERS Safety Report 23571591 (Version 2)
Quarter: 2024Q2

REPORT INFORMATION
  Report Type: Spontaneous
  Country: JP (occurrence: None)
  Receive Date: 20240227
  Receipt Date: 20240408
  Transmission Date: 20240716
  Serious: Yes (Death, Life-Threatening, Other)
  Sender: FDA-Public Use
  Company Number: 2024A047116

PATIENT
  Sex: Male

DRUGS (5)
  1. IMFINZI [Suspect]
     Active Substance: DURVALUMAB
     Indication: Bile duct cancer
     Route: 041
     Dates: start: 20230622, end: 202311
  2. GEMCITABINE [Suspect]
     Active Substance: GEMCITABINE
     Indication: Bile duct cancer
     Dosage: DOSE UNKNOWN
     Dates: start: 20230622, end: 202311
  3. GEMCITABINE [Suspect]
     Active Substance: GEMCITABINE
     Indication: Bile duct cancer
     Dosage: 14 DOSES
     Route: 042
  4. CISPLATIN [Suspect]
     Active Substance: CISPLATIN
     Indication: Bile duct cancer
     Dosage: 14 DOSES
     Route: 042
     Dates: start: 20230622, end: 202311
  5. BARACLUDE [Concomitant]
     Active Substance: ENTECAVIR
     Dosage: DOSE UNKNOWN
     Route: 048
     Dates: start: 20131116, end: 20231213

REACTIONS (8)
  - Haemorrhage [Fatal]
  - Septic shock [Fatal]
  - Platelet count decreased [Unknown]
  - Coagulopathy [Unknown]
  - Dehydration [Unknown]
  - Circulatory collapse [Unknown]
  - Hypoxia [Recovering/Resolving]
  - Pneumonia [Fatal]

NARRATIVE: CASE EVENT DATE: 20231213
